FAERS Safety Report 6223943-5 (Version None)
Quarter: 2009Q2

REPORT INFORMATION
  Report Type: 
  Country: None (occurrence: None)
  Receive Date: 20090612
  Receipt Date: 20090508
  Transmission Date: 20091009
  Serious: No
  Sender: FDA-Public Use
  Company Number: US-ABBOTT-09P-163-0560939-00

PATIENT
  Sex: Female
  Weight: 79.45 kg

DRUGS (20)
  1. HUMIRA [Suspect]
     Indication: COLITIS ULCERATIVE
     Route: 058
     Dates: start: 20071119, end: 20081211
  2. HUMIRA [Suspect]
     Route: 058
     Dates: end: 20081211
  3. AZULFIDINE EN-TABS [Concomitant]
     Indication: COLITIS ULCERATIVE
     Dosage: 2 TO 3 TIMES PER DAY
     Route: 048
  4. AZULFIDINE EN-TABS [Concomitant]
     Indication: CROHN'S DISEASE
  5. SULFASALAZINE [Concomitant]
     Indication: COLITIS
  6. SULFASALAZINE [Concomitant]
     Indication: CROHN'S DISEASE
  7. AZATHIOPRINE [Concomitant]
     Indication: DRUG USE FOR UNKNOWN INDICATION
  8. ZOLOFT [Concomitant]
     Indication: DRUG USE FOR UNKNOWN INDICATION
  9. ZOLOFT [Concomitant]
  10. PAMPRIN TAB [Concomitant]
     Indication: DRUG USE FOR UNKNOWN INDICATION
  11. TRAMADOL HCL [Concomitant]
     Indication: DRUG USE FOR UNKNOWN INDICATION
  12. PSYLLIUM [Concomitant]
     Indication: DRUG USE FOR UNKNOWN INDICATION
  13. ALOE VERA [Concomitant]
     Indication: DRUG USE FOR UNKNOWN INDICATION
  14. ASPIRIN [Concomitant]
     Indication: DRUG USE FOR UNKNOWN INDICATION
  15. VITAMIN TAB [Concomitant]
     Indication: DRUG USE FOR UNKNOWN INDICATION
  16. VITAMIN E [Concomitant]
     Indication: DRUG USE FOR UNKNOWN INDICATION
  17. OMEGA FISH OIL [Concomitant]
     Indication: DRUG USE FOR UNKNOWN INDICATION
  18. CALCIUM [Concomitant]
     Indication: DRUG USE FOR UNKNOWN INDICATION
  19. PAXIL [Concomitant]
     Indication: SOMNOLENCE
  20. LEVBID [Concomitant]
     Indication: DRUG USE FOR UNKNOWN INDICATION

REACTIONS (29)
  - ABDOMINAL PAIN [None]
  - ADVERSE DRUG REACTION [None]
  - ANXIETY [None]
  - CHEST DISCOMFORT [None]
  - DEHYDRATION [None]
  - DIZZINESS [None]
  - DRY THROAT [None]
  - DYSPLASIA [None]
  - DYSPNOEA [None]
  - FEELING ABNORMAL [None]
  - FIBROMYALGIA [None]
  - HEADACHE [None]
  - HEART RATE INCREASED [None]
  - ILL-DEFINED DISORDER [None]
  - INFLUENZA LIKE ILLNESS [None]
  - LYMPH NODE PAIN [None]
  - LYMPHADENOPATHY [None]
  - MUSCULOSKELETAL PAIN [None]
  - NASAL DRYNESS [None]
  - NAUSEA [None]
  - NECK PAIN [None]
  - NIGHTMARE [None]
  - OROPHARYNGEAL PAIN [None]
  - PALPITATIONS [None]
  - SINUS DISORDER [None]
  - STRESS [None]
  - SWELLING FACE [None]
  - THROAT TIGHTNESS [None]
  - TREMOR [None]
